FAERS Safety Report 20107376 (Version 1)
Quarter: 2021Q4

REPORT INFORMATION
  Report Type: Other
  Country: US (occurrence: None)
  Receive Date: 20211124
  Receipt Date: 20211124
  Transmission Date: 20220303
  Serious: No
  Sender: FDA-Public Use
  Company Number: US-ROCHE-2961009

PATIENT
  Sex: Female

DRUGS (1)
  1. OCREVUS [Suspect]
     Active Substance: OCRELIZUMAB
     Indication: Relapsing-remitting multiple sclerosis
     Dosage: DATE OF SERVICES: 12/APR/2021 (600MG), 27/JAN/2020, 28/APR/2021, 1/FEB/2020
     Route: 042
     Dates: start: 20200127

REACTIONS (2)
  - Fungal infection [Not Recovered/Not Resolved]
  - Pruritus [Unknown]
